FAERS Safety Report 6915545-X (Version None)
Quarter: 2010Q3

REPORT INFORMATION
  Report Type: 
  Country: None (occurrence: None)
  Receive Date: 20100804
  Receipt Date: 20100723
  Transmission Date: 20110219
  Serious: Yes (Hospitalization, Other)
  Sender: FDA-Public Use
  Company Number: WAES0903USA01914

PATIENT
  Age: 67 Year
  Sex: Male
  Weight: 105.6881 kg

DRUGS (16)
  1. VYTORIN [Suspect]
     Indication: ACUTE CORONARY SYNDROME
     Dosage: 10-40 MG/DAILY/PO
     Route: 048
     Dates: start: 20061221, end: 20090318
  2. TAB PLACEBO (UNSPECIFIED) UNK [Suspect]
     Indication: ACUTE CORONARY SYNDROME
     Dosage: PO
     Route: 048
     Dates: start: 20061221, end: 20090318
  3. TAB PLACEBO (UNSPECIFIED) UNK [Suspect]
     Indication: ACUTE CORONARY SYNDROME
     Dosage: PO
     Route: 048
     Dates: start: 20061221, end: 20090318
  4. APO-AMITRYPTILLINE [Concomitant]
  5. CARMEN [Concomitant]
  6. MICARDIS [Concomitant]
  7. ALLOPURINOL [Concomitant]
  8. ASPIRIN [Concomitant]
  9. BENZBROMARONE [Concomitant]
  10. BISOPROLOL [Concomitant]
  11. FINASTERIDE [Concomitant]
  12. INDAPAMIDE [Concomitant]
  13. INSULIN [Concomitant]
  14. METFORMIN [Concomitant]
  15. OMEPRAZOLE [Concomitant]
  16. TAMSULOSIN HYDROCHLORIDE [Concomitant]

REACTIONS (5)
  - AGGRESSION [None]
  - DELUSION [None]
  - PERSONALITY CHANGE [None]
  - PSYCHOTIC DISORDER [None]
  - STATUS EPILEPTICUS [None]
